FAERS Safety Report 4639278-8 (Version None)
Quarter: 2005Q3

REPORT INFORMATION
  Report Type: 
  Country: None (occurrence: None)
  Receive Date: 20050418
  Receipt Date: 20050406
  Transmission Date: 20060218
  Serious: Yes (Hospitalization)
  Sender: FDA-Public Use
  Company Number: 05P-166-0296945-00

PATIENT
  Age: 60 Year
  Sex: Male
  Weight: 96 kg

DRUGS (8)
  1. HUMIRA [Suspect]
     Indication: RHEUMATOID ARTHRITIS
     Dosage: 40 MG, 1 IN 2 WK, SUBCUTANEOUS
     Route: 058
     Dates: start: 20031201
  2. PREDNISOLONE [Concomitant]
  3. METHOTREXATE [Concomitant]
  4. AMLODIPINE [Concomitant]
  5. OMEPRAZOLE [Concomitant]
  6. ETIDRONATE DISODIUM [Concomitant]
  7. ISOSORBIDE [Concomitant]
  8. ISOSORBIDE MONONITRATE [Concomitant]

REACTIONS (1)
  - NECK PAIN [None]
